FAERS Safety Report 13246759 (Version 1)
Quarter: 2017Q1

REPORT INFORMATION
  Report Type: Spontaneous
  Country: GB (occurrence: GB)
  Receive Date: 20170217
  Receipt Date: 20170217
  Transmission Date: 20170428
  Serious: Yes (Other)
  Sender: FDA-Public Use
  Company Number: GB-TEVA-740734ACC

PATIENT
  Age: 47 Year
  Sex: Male
  Weight: 141.06 kg

DRUGS (1)
  1. ACTAVIS UK TRIMETHOPRIM [Suspect]
     Active Substance: TRIMETHOPRIM
     Indication: PROSTATITIS
     Route: 048
     Dates: start: 20170125

REACTIONS (1)
  - Balanitis candida [Not Recovered/Not Resolved]

NARRATIVE: CASE EVENT DATE: 20170128
